FAERS Safety Report 6985515-4 (Version None)
Quarter: 2010Q3

REPORT INFORMATION
  Report Type: 
  Country: None (occurrence: None)
  Receive Date: 20100915
  Receipt Date: 20100909
  Transmission Date: 20110219
  Serious: Yes (Other)
  Sender: FDA-Public Use
  Company Number: D0067779A

PATIENT
  Age: 42 Year

DRUGS (2)
  1. REQUIP [Suspect]
     Indication: PARKINSON'S DISEASE
     Dosage: 8MG PER DAY
     Route: 048
  2. AZILECT [Suspect]
     Dosage: 1MG PER DAY
     Route: 065

REACTIONS (4)
  - ANXIETY [None]
  - DEPRESSED MOOD [None]
  - MUSCULOSKELETAL DISORDER [None]
  - PARKINSON'S DISEASE [None]
